FAERS Safety Report 6699339-9 (Version None)
Quarter: 2010Q2

REPORT INFORMATION
  Report Type: 
  Country: None (occurrence: None)
  Receive Date: 20100427
  Receipt Date: 20100420
  Transmission Date: 20101027
  Serious: Yes (Other)
  Sender: FDA-Public Use
  Company Number: DK-NOVOPROD-307474

PATIENT
  Age: 70 Year
  Sex: Female

DRUGS (1)
  1. NOVOMIX 30 FLEXPEN [Suspect]
     Indication: TYPE 2 DIABETES MELLITUS
     Dosage: 42 UNITS TWICE DAILY
     Dates: start: 20090101

REACTIONS (2)
  - FEELING ABNORMAL [None]
  - HYPERSENSITIVITY [None]
